FAERS Safety Report 11876131 (Version 1)
Quarter: 2015Q4

REPORT INFORMATION
  Report Type: Spontaneous
  Country: US (occurrence: US)
  Receive Date: 20151229
  Receipt Date: 20151229
  Transmission Date: 20160305
  Serious: Yes (Other)
  Sender: FDA-Public Use
  Company Number: US-BAYER-2015-492678

PATIENT
  Age: 52 Year
  Sex: Female

DRUGS (1)
  1. GADAVIST [Suspect]
     Active Substance: GADOBUTROL
     Dosage: 9 ML, UNK
     Dates: start: 20151218

REACTIONS (6)
  - Injection site pruritus [None]
  - Throat irritation [None]
  - Oropharyngeal discomfort [None]
  - Blood pressure increased [None]
  - Ocular hyperaemia [None]
  - Pruritus generalised [None]

NARRATIVE: CASE EVENT DATE: 201512
